FAERS Safety Report 4503767-7 (Version None)
Quarter: 2004Q4

REPORT INFORMATION
  Report Type: 
  Country: None (occurrence: None)
  Receive Date: 20041115
  Receipt Date: 20041102
  Transmission Date: 20050328
  Serious: Yes (Other)
  Sender: FDA-Public Use
  Company Number: 2004087505

PATIENT
  Age: 50 Year
  Sex: Female

DRUGS (3)
  1. PHENYTOIN [Suspect]
     Indication: EPILEPSY
     Dosage: 300 MG
  2. FLUOROURACIL [Suspect]
     Indication: RECTAL CANCER
     Dosage: 500 MG/M2
  3. CONJUGATED ESTROGENS [Concomitant]

REACTIONS (10)
  - ATAXIA [None]
  - BALANCE DISORDER [None]
  - CATHETER RELATED COMPLICATION [None]
  - COORDINATION ABNORMAL [None]
  - DRUG TOXICITY [None]
  - METASTASES TO LYMPH NODES [None]
  - NYSTAGMUS [None]
  - RECTAL CANCER [None]
  - SUBCLAVIAN VEIN THROMBOSIS [None]
  - VISION BLURRED [None]
